FAERS Safety Report 9140073 (Version 1)
Quarter: 2013Q1

REPORT INFORMATION
  Report Type: Spontaneous
  Country: BR (occurrence: BR)
  Receive Date: 20130305
  Receipt Date: 20130311
  Transmission Date: 20140127
  Serious: Yes (Other)
  Sender: FDA-Public Use
  Company Number: PHHY2013BR020870

PATIENT
  Age: 29 Year
  Sex: Female

DRUGS (3)
  1. TRILAX [Suspect]
     Indication: ANALGESIC THERAPY
     Route: 048
  2. CIPROFLOXACIN [Concomitant]
     Indication: URINARY TRACT INFECTION
     Dosage: 500 MG
  3. OMEPRAZOLE [Concomitant]

REACTIONS (3)
  - Chills [Unknown]
  - Syncope [Unknown]
  - Headache [Recovering/Resolving]
